FAERS Safety Report 23820134 (Version 3)
Quarter: 2024Q2

REPORT INFORMATION
  Report Type: Spontaneous
  Country: JP (occurrence: JP)
  Receive Date: 20240506
  Receipt Date: 20240522
  Transmission Date: 20240716
  Serious: Yes (Hospitalization, Other)
  Sender: FDA-Public Use
  Company Number: JP-Accord-422704

PATIENT
  Age: 75 Year
  Sex: Female
  Weight: 65 kg

DRUGS (2)
  1. METHOTREXATE [Suspect]
     Active Substance: METHOTREXATE
     Indication: Rheumatoid arthritis
     Route: 048
  2. GOLIMUMAB [Suspect]
     Active Substance: GOLIMUMAB
     Indication: Rheumatoid arthritis

REACTIONS (8)
  - Hepatic neoplasm [Recovered/Resolved]
  - Tumour rupture [Recovered/Resolved]
  - Tumour haemorrhage [Recovered/Resolved]
  - Lymphoma [Recovered/Resolved]
  - Diffuse large B-cell lymphoma [Recovered/Resolved]
  - Liver injury [Recovered/Resolved]
  - Haemoperitoneum [Recovered/Resolved]
  - Lymphoproliferative disorder [Recovered/Resolved]
